FAERS Safety Report 11232948 (Version 16)
Quarter: 2020Q3

REPORT INFORMATION
  Report Type: Report from Study
  Country: US (occurrence: US)
  Receive Date: 20150701
  Receipt Date: 20200825
  Transmission Date: 20201102
  Serious: Yes (Hospitalization)
  Sender: FDA-Public Use
  Company Number: US-ACTELION-A-NJ2015-120333

PATIENT
  Age: 63 Year
  Sex: Male
  Weight: 74.83 kg

DRUGS (4)
  1. REVATIO [Concomitant]
     Active Substance: SILDENAFIL CITRATE
  2. VELETRI [Suspect]
     Active Substance: EPOPROSTENOL
     Indication: PULMONARY HYPERTENSION
     Dosage: 21.75 NG/KG, PER MIN
     Route: 042
  3. VELETRI [Suspect]
     Active Substance: EPOPROSTENOL
     Dosage: 21.75 NG/KG, PER MIN
     Route: 042
     Dates: start: 20100818
  4. VELETRI [Suspect]
     Active Substance: EPOPROSTENOL
     Dosage: 26.5 NG/KG, PER MIN
     Route: 042

REACTIONS (11)
  - Pain in jaw [Unknown]
  - Telangiectasia [Unknown]
  - Barrett^s oesophagus [Unknown]
  - Streptococcal infection [Unknown]
  - Gastrointestinal haemorrhage [Unknown]
  - Stent placement [Unknown]
  - Dizziness [Unknown]
  - Haemoglobin decreased [Unknown]
  - Diarrhoea [Recovered/Resolved]
  - Dysplasia [Unknown]
  - Dyspnoea exertional [Recovering/Resolving]

NARRATIVE: CASE EVENT DATE: 2014
